FAERS Safety Report 6226442-X (Version None)
Quarter: 2009Q2

REPORT INFORMATION
  Report Type: 
  Country: None (occurrence: None)
  Receive Date: 20090612
  Receipt Date: 20090608
  Transmission Date: 20091009
  Serious: Yes (Other)
  Sender: FDA-Public Use
  Company Number: US-JNJFOC-20090602945

PATIENT
  Sex: Male

DRUGS (1)
  1. CONCERTA [Suspect]
     Indication: ATTENTION DEFICIT/HYPERACTIVITY DISORDER
     Route: 048

REACTIONS (5)
  - DECREASED APPETITE [None]
  - DISTURBANCE IN SOCIAL BEHAVIOUR [None]
  - EDUCATIONAL PROBLEM [None]
  - ONYCHOPHAGIA [None]
  - WEIGHT DECREASED [None]
